FAERS Safety Report 10287587 (Version 1)
Quarter: 2014Q3

REPORT INFORMATION
  Report Type: Spontaneous
  Country: FR (occurrence: None)
  Receive Date: 20140707
  Receipt Date: 20140707
  Transmission Date: 20150326
  Serious: Yes (Hospitalization)
  Sender: FDA-Public Use
  Company Number: SYM-2014-22542

PATIENT
  Age: 87 Year
  Sex: Male

DRUGS (5)
  1. PREVISCAN (FLUINDIONE) (FLUINDIONE) [Concomitant]
     Active Substance: FLUINDIONE
  2. FORLAX [Concomitant]
     Active Substance: POLYETHYLENE GLYCOL 4000
  3. PAROXETINE (PAROXETINE) [Concomitant]
     Active Substance: PAROXETINE HYDROCHLORIDE
  4. TILDIEM [Suspect]
     Active Substance: DILTIAZEM HYDROCHLORIDE
     Indication: PRODUCT USED FOR UNKNOWN INDICATION
     Dosage: 3 DOSAGE FORMS
     Route: 048
     Dates: start: 20140213, end: 20140306
  5. FLECAINIDE ACETATE. [Concomitant]
     Active Substance: FLECAINIDE ACETATE

REACTIONS (3)
  - Colonic pseudo-obstruction [None]
  - Hypokalaemia [None]
  - Intestinal obstruction [None]

NARRATIVE: CASE EVENT DATE: 20140224
